FAERS Safety Report 9177382 (Version 1)
Quarter: 2013Q1

REPORT INFORMATION
  Report Type: Spontaneous
  Country: ES (occurrence: ES)
  Receive Date: 20130321
  Receipt Date: 20130321
  Transmission Date: 20140127
  Serious: Yes (Hospitalization)
  Sender: FDA-Public Use
  Company Number: ES-ELI_LILLY_AND_COMPANY-ES201003005430

PATIENT
  Sex: Female
  Weight: 51 kg

DRUGS (4)
  1. FORSTEO [Suspect]
     Indication: OSTEOPOROSIS
     Dosage: 20 UG, DAILY (1/D)
     Route: 058
     Dates: start: 20091030
  2. TRANSTEC [Concomitant]
     Dosage: 35 MG EVERY/72 H
  3. CELEBREX [Concomitant]
     Dosage: 200 MG, DAILY (1/D)
  4. XUMADOL [Concomitant]
     Dosage: 1 G, 2/D

REACTIONS (1)
  - Spinal pain [Not Recovered/Not Resolved]
